FAERS Safety Report 13005386 (Version 1)
Quarter: 2016Q4

REPORT INFORMATION
  Report Type: Spontaneous
  Country: US (occurrence: US)
  Receive Date: 20161207
  Receipt Date: 20161207
  Transmission Date: 20170207
  Serious: Yes (Hospitalization)
  Sender: FDA-Public Use
  Company Number: US-BAYER-2016-224558

PATIENT
  Sex: Female

DRUGS (5)
  1. SKELAXIN [Concomitant]
     Active Substance: METAXALONE
     Indication: TOXICITY TO VARIOUS AGENTS
     Dosage: 800 MG, TID
  2. VISTARIL [Concomitant]
     Active Substance: HYDROXYZINE PAMOATE
     Indication: PAIN
     Dosage: 25 MG, QID
  3. NEURONTIN [Concomitant]
     Active Substance: GABAPENTIN
     Indication: POST POLIO SYNDROME
     Dosage: 600 MG, QID
  4. BAYER ASPIRIN [Suspect]
     Active Substance: ASPIRIN
  5. NEURONTIN [Concomitant]
     Active Substance: GABAPENTIN
     Indication: SPINAL PAIN

REACTIONS (6)
  - Dyspnoea [Unknown]
  - Drug hypersensitivity [Unknown]
  - Musculoskeletal discomfort [None]
  - Pharyngeal oedema [None]
  - Pallor [None]
  - Chest discomfort [None]
